FAERS Safety Report 6441118-1 (Version None)
Quarter: 2009Q4

REPORT INFORMATION
  Report Type: 
  Country: None (occurrence: None)
  Receive Date: 20091113
  Receipt Date: 20091113
  Transmission Date: 20100525
  Serious: Yes (Other)
  Sender: FDA-Public Use
  Company Number: None

PATIENT
  Sex: Female
  Weight: 8.86 kg

DRUGS (3)
  1. ROCURONIUM BROMIDE [Suspect]
     Indication: INDUCTION OF ANAESTHESIA
     Dosage: 10MG ONCE IV BOLUS ; 5MG ONCE IV BOLUS
     Route: 040
     Dates: start: 20091104, end: 20091104
  2. SEVOFLOURANE [Concomitant]
  3. FENTANYL-100 [Concomitant]

REACTIONS (2)
  - ASTHENIA [None]
  - DELAYED RECOVERY FROM ANAESTHESIA [None]
